APPROVED DRUG PRODUCT: DALFAMPRIDINE
Active Ingredient: DALFAMPRIDINE
Strength: 10MG
Dosage Form/Route: TABLET, EXTENDED RELEASE;ORAL
Application: A206836 | Product #001 | TE Code: AB
Applicant: ACTAVIS LABORATORIES FL INC
Approved: Jan 23, 2017 | RLD: No | RS: No | Type: RX